FAERS Safety Report 5345974-X (Version None)
Quarter: 2007Q2

REPORT INFORMATION
  Report Type: 
  Country: None (occurrence: None)
  Receive Date: 20070605
  Receipt Date: 20070524
  Transmission Date: 20071010
  Serious: Yes (Other)
  Sender: FDA-Public Use
  Company Number: IE-ROCHE-495827

PATIENT
  Age: 55 Year
  Sex: Female

DRUGS (4)
  1. BONIVA [Suspect]
     Indication: OSTEOPOROSIS
     Dosage: DOSAGE REGIMEN: MONTHLY
     Route: 048
     Dates: start: 20070226, end: 20070401
  2. BECOTIDE [Concomitant]
     Indication: BRONCHITIS
     Dosage: DOSAGE REGIMEN: INTERMITTENTLY
     Route: 055
     Dates: start: 20060601
  3. BUSCOPAN [Concomitant]
     Route: 048
     Dates: start: 20070201
  4. ZIMOVANE [Concomitant]
     Indication: SOMNOLENCE
     Dosage: TAKEN AT NIGHT
     Route: 048

REACTIONS (2)
  - COUGH [None]
  - DYSPNOEA [None]
